FAERS Safety Report 4959812-8 (Version None)
Quarter: 2006Q1

REPORT INFORMATION
  Report Type: 
  Country: None (occurrence: None)
  Receive Date: 20060324
  Receipt Date: 20060321
  Transmission Date: 20060701
  Serious: Yes (Hospitalization)
  Sender: FDA-Public Use
  Company Number: HQWYE427721MAR06

PATIENT
  Age: 93 Year
  Sex: Female

DRUGS (5)
  1. CORDARONE [Suspect]
     Dosage: 200 MG 5X PER 1 WK ORAL; ^ A LONG TIME ^
     Route: 048
     Dates: end: 20060204
  2. TRINIPATCH (GLYCERYL TRINITRATE) [Concomitant]
  3. ATHYMIL (MIANSERIN HYDROCHLORIDE) [Concomitant]
  4. PERINDOPRIL ERUMINE [Concomitant]
  5. ASPIRIN [Concomitant]

REACTIONS (6)
  - ACUTE PULMONARY OEDEMA [None]
  - CARDIOMEGALY [None]
  - INTERSTITIAL LUNG DISEASE [None]
  - PERICARDIAL EFFUSION [None]
  - PULMONARY FIBROSIS [None]
  - PULMONARY HYPERTENSION [None]
